FAERS Safety Report 6610472-X (Version None)
Quarter: 2010Q1

REPORT INFORMATION
  Report Type: 
  Country: None (occurrence: None)
  Receive Date: 20100302
  Receipt Date: 20100219
  Transmission Date: 20100710
  Serious: Yes (Other)
  Sender: FDA-Public Use
  Company Number: US-WYE-H13732610

PATIENT
  Age: 69 Year
  Sex: Female
  Weight: 49.94 kg

DRUGS (3)
  1. IBUPROFEN (ADVIL) [Suspect]
     Indication: PAIN
     Dosage: 1 CAPSULE X 1
     Route: 048
     Dates: start: 20091123, end: 20091123
  2. VITAMINS [Concomitant]
     Dosage: UNKNOWN
     Route: 048
  3. PERCOCET [Concomitant]
     Indication: PAIN
     Dosage: UNKNOWN
     Route: 048

REACTIONS (3)
  - HYPERSENSITIVITY [None]
  - THROAT TIGHTNESS [None]
  - URTICARIA [None]
